FAERS Safety Report 5199653-2 (Version None)
Quarter: 2007Q1

REPORT INFORMATION
  Report Type: 
  Country: None (occurrence: None)
  Receive Date: 20070103
  Receipt Date: 20070103
  Transmission Date: 20070707
  Serious: Yes (Other)
  Sender: FDA-Public Use
  Company Number: None

PATIENT
  Age: 55 Year
  Sex: Female
  Weight: 83.9154 kg

DRUGS (1)
  1. HUMIRA [Suspect]
     Indication: RHEUMATOID ARTHRITIS
     Dosage: 40MG  QOW  SQ
     Route: 058
     Dates: start: 20060705, end: 20061016

REACTIONS (6)
  - DIZZINESS [None]
  - EAR INFECTION [None]
  - FEELING ABNORMAL [None]
  - HEADACHE [None]
  - SINUSITIS [None]
  - THINKING ABNORMAL [None]
